FAERS Safety Report 9787616 (Version 2)
Quarter: 2014Q4

REPORT INFORMATION
  Report Type: Spontaneous
  Country: CH (occurrence: None)
  Receive Date: 20131226
  Receipt Date: 20141105
  Transmission Date: 20150529
  Serious: Yes (Hospitalization, Other)
  Sender: FDA-Public Use
  Company Number: AXC-2013-000668

PATIENT
  Age: 29 Year
  Sex: Female

DRUGS (8)
  1. ELTROXIN [Suspect]
     Active Substance: LEVOTHYROXINE
     Indication: HYPOTHYROIDISM
     Dates: start: 2012
  2. GINO-TARDYFERON (ASCORBIC ACID, FERROUS SULFATE, FOLIC ACID, PROTEASE) [Concomitant]
  3. BUSCOPAN [Suspect]
     Active Substance: BUTYLSCOPOLAMINE BROMIDE
     Indication: PRODUCT USED FOR UNKNOWN INDICATION
     Dates: start: 20130510
  4. MAGNESIOCARD [Suspect]
     Active Substance: MAGNESIUM ASPARTATE HYDROCHLORIDE
     Indication: PRODUCT USED FOR UNKNOWN INDICATION
     Dates: start: 20130610
  5. FRAGMIN [Suspect]
     Active Substance: DALTEPARIN SODIUM
     Indication: PRODUCT USED FOR UNKNOWN INDICATION
     Dosage: 5000 USP, QD
     Dates: start: 20130607, end: 20130609
  6. URSODEOXYCHOLIC ACID [Suspect]
     Active Substance: URSODIOL
     Indication: PRODUCT USED FOR UNKNOWN INDICATION
  7. ADALAT CC [Suspect]
     Active Substance: NIFEDIPINE
     Indication: GESTATIONAL HYPERTENSION
     Dates: start: 20130607, end: 20130610
  8. ADALAT CC [Suspect]
     Active Substance: NIFEDIPINE
     Indication: GESTATIONAL HYPERTENSION
     Dates: start: 20130610, end: 20130619

REACTIONS (6)
  - Gestational hypertension [None]
  - Exposure during pregnancy [None]
  - Vaginal haemorrhage [None]
  - Maternal exposure during pregnancy [None]
  - Caesarean section [None]
  - Haemorrhage in pregnancy [None]

NARRATIVE: CASE EVENT DATE: 20121110
